FAERS Safety Report 6834830-3 (Version None)
Quarter: 2010Q3

REPORT INFORMATION
  Report Type: 
  Country: None (occurrence: None)
  Receive Date: 20100712
  Receipt Date: 20070413
  Transmission Date: 20110219
  Serious: No
  Sender: FDA-Public Use
  Company Number: US-PFIZER INC-2007030616

PATIENT
  Sex: Male
  Weight: 78.02 kg

DRUGS (15)
  1. CHANTIX [Suspect]
     Indication: SMOKING CESSATION THERAPY
     Dates: start: 20070301
  2. VERAPAMIL [Concomitant]
  3. LASIX [Concomitant]
  4. POTASSIUM [Concomitant]
  5. ZOCOR [Concomitant]
  6. LYRICA [Concomitant]
  7. WARFARIN SODIUM [Concomitant]
  8. EFFEXOR [Concomitant]
  9. VITAMIN C [Concomitant]
  10. ZINC [Concomitant]
  11. MULTI-VITAMINS [Concomitant]
  12. CALCIUM WITH VITAMIN D [Concomitant]
  13. VITAMIN E [Concomitant]
  14. LOVAZA [Concomitant]
  15. VITAMIN B6 [Concomitant]

REACTIONS (1)
  - SOMNOLENCE [None]
